FAERS Safety Report 10681844 (Version 1)
Quarter: 2014Q4

REPORT INFORMATION
  Report Type: Spontaneous
  Country: US (occurrence: None)
  Receive Date: 20141229
  Receipt Date: 20141229
  Transmission Date: 20150529
  Serious: No
  Sender: FDA-Public Use
  Company Number: None

PATIENT
  Age: 62 Year
  Sex: Female

DRUGS (1)
  1. SINGULAIR [Suspect]
     Active Substance: MONTELUKAST SODIUM
     Indication: ASTHMA
     Dosage: 1 AT BEDTIME, BY MOUTH
     Route: 048
     Dates: start: 20141201, end: 20141215

REACTIONS (1)
  - Toothache [None]

NARRATIVE: CASE EVENT DATE: 20141201
